FAERS Safety Report 4708834-0 (Version None)
Quarter: 2005Q3

REPORT INFORMATION
  Report Type: 
  Country: None (occurrence: None)
  Receive Date: 20050705
  Receipt Date: 20050629
  Transmission Date: 20060218
  Serious: No
  Sender: FDA-Public Use
  Company Number: A001-002-006526

PATIENT
  Sex: Female

DRUGS (2)
  1. ARICEPT [Suspect]
     Indication: DEMENTIA ALZHEIMER'S TYPE
     Dosage: 10 MG, 1 IN 1 D, ORAL
     Route: 048
  2. ARICEPT [Suspect]
     Indication: VASCULAR DEMENTIA
     Dosage: 10 MG, 1 IN 1 D, ORAL
     Route: 048

REACTIONS (2)
  - CEREBRAL THROMBOSIS [None]
  - OPHTHALMOPLEGIA [None]
